FAERS Safety Report 24426694 (Version 2)
Quarter: 2024Q4

REPORT INFORMATION
  Report Type: Spontaneous
  Country: US (occurrence: US)
  Receive Date: 20241011
  Receipt Date: 20241028
  Transmission Date: 20250115
  Serious: No
  Sender: ROCHE
  Company Number: US-ROCHE-10000099291

PATIENT
  Age: 54 Year
  Sex: Female
  Weight: 88.45 kg

DRUGS (2)
  1. ACTEMRA [Suspect]
     Active Substance: TOCILIZUMAB
     Indication: Rheumatoid arthritis
     Dosage: ACTPEN
     Route: 058
     Dates: start: 20240801
  2. ACTEMRA [Suspect]
     Active Substance: TOCILIZUMAB
     Dosage: ACTPEN
     Route: 058

REACTIONS (5)
  - Product dose omission issue [Unknown]
  - Arthritis [Not Recovered/Not Resolved]
  - Device malfunction [Unknown]
  - Device defective [Unknown]
  - Product preparation error [Unknown]

NARRATIVE: CASE EVENT DATE: 20240926
